FAERS Safety Report 7056680-8 (Version None)
Quarter: 2010Q4

REPORT INFORMATION
  Report Type: 
  Country: None (occurrence: None)
  Receive Date: 20101021
  Receipt Date: 20101013
  Transmission Date: 20110411
  Serious: Yes (Other)
  Sender: FDA-Public Use
  Company Number: US-AMGEN LTD.-KDL410832

PATIENT

DRUGS (1)
  1. ARANESP [Suspect]
     Indication: RENAL FAILURE CHRONIC
     Dosage: 300 A?G, QWK

REACTIONS (2)
  - HAEMOCHROMATOSIS [None]
  - THERAPEUTIC RESPONSE DECREASED [None]
